FAERS Safety Report 14094155 (Version 2)
Quarter: 2017Q4

REPORT INFORMATION
  Report Type: Spontaneous
  Country: JP (occurrence: JP)
  Receive Date: 20171016
  Receipt Date: 20171024
  Transmission Date: 20180321
  Serious: Yes (Other)
  Sender: FDA-Public Use
  Company Number: JP-SA-2017SA199233

PATIENT
  Age: 19 Year
  Sex: Female

DRUGS (7)
  1. ALEVIATIN [Concomitant]
     Active Substance: PHENYTOIN SODIUM
  2. GLYCYRON [Concomitant]
     Active Substance: AMMONIUM GLYCYRRHIZATE\GLYCINE\METHIONINE
  3. LEVOCETIRIZINE [Suspect]
     Active Substance: LEVOCETIRIZINE
     Indication: RHINITIS
     Route: 048
     Dates: end: 20171003
  4. LAMICTAL [Suspect]
     Active Substance: LAMOTRIGINE
     Indication: EPILEPSY
     Route: 048
  5. PHENOBAL [Concomitant]
     Active Substance: PHENOBARBITAL
  6. DIAPP [Concomitant]
     Active Substance: DIAZEPAM
  7. URSO [Concomitant]
     Active Substance: URSODIOL

REACTIONS (1)
  - Seizure [Recovered/Resolved]

NARRATIVE: CASE EVENT DATE: 20171003
